FAERS Safety Report 5199529-0 (Version None)
Quarter: 2006Q4

REPORT INFORMATION
  Report Type: 
  Country: None (occurrence: None)
  Receive Date: 20061229
  Receipt Date: 20061219
  Transmission Date: 20070319
  Serious: Yes (Other)
  Sender: FDA-Public Use
  Company Number: 2006SP002020

PATIENT
  Age: 65 Year
  Sex: Female
  Weight: 51 kg

DRUGS (10)
  1. PEG-INTRON [Suspect]
     Indication: HEPATITIS C
     Dosage: 80 MCG; QW; SC; SEE IMAGE
     Route: 058
     Dates: end: 20061102
  2. PEG-INTRON [Suspect]
     Indication: HEPATITIS C
     Dosage: 80 MCG; QW; SC; SEE IMAGE
     Route: 058
     Dates: start: 20060728
  3. REBETOL [Suspect]
     Indication: HEPATITIS C
     Dosage: 600 MG; QD; PO; SEE IMAGE
     Route: 048
     Dates: end: 20061102
  4. REBETOL [Suspect]
     Indication: HEPATITIS C
     Dosage: 600 MG; QD; PO; SEE IMAGE
     Route: 048
     Dates: start: 20060728
  5. NORVASC [Concomitant]
  6. NU-LOTAN [Concomitant]
  7. URSO [Concomitant]
  8. SELBEX [Concomitant]
  9. BENET [Concomitant]
  10. NEUROTROPIN [Concomitant]

REACTIONS (4)
  - DELIRIUM [None]
  - HALLUCINATION [None]
  - MALAISE [None]
  - SPEECH DISORDER [None]
